FAERS Safety Report 17200501 (Version 1)
Quarter: 2019Q4

REPORT INFORMATION
  Report Type: Spontaneous
  Country: US (occurrence: US)
  Receive Date: 20191202
  Receipt Date: 20191202
  Transmission Date: 20200122
  Serious: No
  Sender: FDA-Public Use
  Company Number: None

PATIENT
  Age: 78 Year
  Sex: Female
  Weight: 55.79 kg

DRUGS (16)
  1. LOSARTIN [Concomitant]
     Active Substance: LOSARTAN
  2. GABAPENTIN. [Concomitant]
     Active Substance: GABAPENTIN
  3. SIMVASTATIN. [Concomitant]
     Active Substance: SIMVASTATIN
  4. MELATONINE [Concomitant]
     Active Substance: MELATONIN
  5. LUTEIN/ZEANTHRUM [Concomitant]
  6. BIOSIL [Concomitant]
  7. ZETIA [Concomitant]
     Active Substance: EZETIMIBE
  8. DHEA [Concomitant]
     Active Substance: PRASTERONE
  9. CALCIUM [Concomitant]
     Active Substance: CALCIUM
  10. AMITRIPILYNE [Concomitant]
  11. ND THYROID LEVOTHYROXIN [Concomitant]
  12. MEDROL [Concomitant]
     Active Substance: METHYLPREDNISOLONE
  13. MULTIVITAMIN [Concomitant]
     Active Substance: VITAMINS
  14. COLACE [Concomitant]
     Active Substance: DOCUSATE SODIUM
  15. MAGNESIUM [Concomitant]
     Active Substance: MAGNESIUM
  16. ZOLPIDEM TARTRATE 10MG [Suspect]
     Active Substance: ZOLPIDEM TARTRATE
     Indication: INSOMNIA
     Dosage: ?          QUANTITY:1 DF DOSAGE FORM;?
     Route: 048
     Dates: start: 2017

REACTIONS (5)
  - Fatigue [None]
  - Headache [None]
  - Nausea [None]
  - Drug ineffective [None]
  - Dizziness [None]

NARRATIVE: CASE EVENT DATE: 20191104
